FAERS Safety Report 8283469-4 (Version None)
Quarter: 2012Q2

REPORT INFORMATION
  Report Type: 
  Country: None (occurrence: None)
  Receive Date: 20120413
  Receipt Date: 20120328
  Transmission Date: 20120825
  Serious: Yes (Other)
  Sender: FDA-Public Use
  Company Number: CHPA2012US006163

PATIENT
  Age: 87 Year
  Sex: Female

DRUGS (1)
  1. FERROUS SULFATE TAB [Suspect]
     Indication: ANAEMIA
     Dosage: 1 DF, QD
     Route: 048

REACTIONS (3)
  - FEMUR FRACTURE [None]
  - CONSTIPATION [None]
  - HAEMOGLOBIN DECREASED [None]
